FAERS Safety Report 15506877 (Version 1)
Quarter: 2018Q4

REPORT INFORMATION
  Report Type: Spontaneous
  Country: CA (occurrence: US)
  Receive Date: 20181016
  Receipt Date: 20181016
  Transmission Date: 20190205
  Serious: No
  Sender: FDA-Public Use
  Company Number: CA-MYLANLABS-2018M1071211

PATIENT
  Sex: Male
  Weight: 86 kg

DRUGS (3)
  1. KLONOPIN [Concomitant]
     Active Substance: CLONAZEPAM
     Indication: PRODUCT USED FOR UNKNOWN INDICATION
     Dosage: UNK
  2. EMSAM [Suspect]
     Active Substance: SELEGILINE
     Indication: ANXIETY
  3. EMSAM [Suspect]
     Active Substance: SELEGILINE
     Indication: DEPRESSION
     Dosage: 9 MG, QD
     Route: 062
     Dates: start: 20180402, end: 20180912

REACTIONS (6)
  - Application site ulcer [Recovered/Resolved]
  - Urticaria [Recovered/Resolved]
  - Application site discolouration [Recovered/Resolved]
  - Application site scar [Recovered/Resolved]
  - Application site urticaria [Recovered/Resolved]
  - Application site inflammation [Recovered/Resolved]
